FAERS Safety Report 9238153 (Version 1)
Quarter: 2013Q2

REPORT INFORMATION
  Report Type: Report from Study
  Country: CA (occurrence: CA)
  Receive Date: 20130418
  Receipt Date: 20130418
  Transmission Date: 20140414
  Serious: Yes (Other)
  Sender: FDA-Public Use
  Company Number: PHHY2013CA033541

PATIENT
  Age: 49 Year
  Sex: Male

DRUGS (2)
  1. CLOZARIL [Suspect]
     Indication: SCHIZOPHRENIA
     Dosage: 150 MG,
     Route: 048
     Dates: start: 20120227, end: 20130318
  2. LIPIDIL MICRO [Concomitant]
     Dosage: 200 MG, UNK

REACTIONS (6)
  - General physical condition abnormal [Recovering/Resolving]
  - Pyrexia [Recovering/Resolving]
  - Diarrhoea [Recovering/Resolving]
  - Somnolence [Recovering/Resolving]
  - Hypotension [Recovering/Resolving]
  - Eosinophilia [Recovering/Resolving]
